FAERS Safety Report 12953531 (Version 1)
Quarter: 2016Q4

REPORT INFORMATION
  Report Type: Spontaneous
  Country: FR (occurrence: FR)
  Receive Date: 20161118
  Receipt Date: 20161118
  Transmission Date: 20170207
  Serious: Yes (Hospitalization, Other)
  Sender: FDA-Public Use
  Company Number: FR-BAXTER-2016BAX057124

PATIENT
  Age: 62 Year
  Sex: Female

DRUGS (9)
  1. FLUOROURACILE ACCORD [Suspect]
     Active Substance: FLUOROURACIL
     Indication: BREAST CANCER
     Dosage: CUMULATIVE DOSE: 2340 MG, ONCE PER CYCLE
     Route: 042
     Dates: start: 201403
  2. LEVOTHYROX [Concomitant]
     Active Substance: LEVOTHYROXINE
     Indication: PRODUCT USED FOR UNKNOWN INDICATION
     Dosage: LONG TERM TREATMENT
     Route: 048
  3. ENDOXAN 1000 MG, POUDRE POUR SOLUTION INJECTABLE [Suspect]
     Active Substance: CYCLOPHOSPHAMIDE
     Indication: BREAST CANCER
     Dosage: CUMULATIVE DOSE: 2340 MG, ONCE PER CYCLE
     Route: 042
     Dates: start: 2014, end: 2014
  4. DOCETAXEL HOSPIRA [Suspect]
     Active Substance: DOCETAXEL
     Indication: BREAST CANCER
     Dosage: CUMULATIVE DOSE: 480 MG, STOPPED MORE THAN 2 YEARS BEFORE THE EVENTS, ONCE PER CYCLE
     Route: 042
     Dates: start: 20140516
  5. HERCEPTIN [Suspect]
     Active Substance: TRASTUZUMAB
     Indication: BREAST CANCER
     Dosage: CUMULATIVE DOSE: 6210 MG, STOPPED MORE THAN A YEAR BEFORE THE EVENTS, ONCE PER CYCLE
     Route: 042
     Dates: start: 20140516
  6. LETROZOLE MYLAN [Suspect]
     Active Substance: LETROZOLE
     Indication: PRODUCT USED FOR UNKNOWN INDICATION
     Dosage: ONCE DAILY
     Route: 048
     Dates: start: 201409
  7. EPIRUBICINE MYLAN [Suspect]
     Active Substance: EPIRUBICIN
     Indication: BREAST CANCER
     Dosage: CUMULATIVE DOSE: 465 MG, ONCE PER CYCLE
     Route: 042
     Dates: start: 2014, end: 2014
  8. VOTRIENT [Suspect]
     Active Substance: PAZOPANIB HYDROCHLORIDE
     Indication: LEIOMYOSARCOMA METASTATIC
     Dosage: ONCE DAILY
     Route: 048
     Dates: start: 201606, end: 201610
  9. DOXORUBICIN [Suspect]
     Active Substance: DOXORUBICIN
     Indication: LEIOMYOSARCOMA METASTATIC
     Dosage: CUMULATIVE DOSE: 368 MG, ONCE PER CYCLE
     Route: 042
     Dates: start: 201604, end: 201606

REACTIONS (4)
  - Intracardiac thrombus [Unknown]
  - Pleural effusion [Unknown]
  - Cardiac failure [Recovering/Resolving]
  - Pericardial effusion [Unknown]

NARRATIVE: CASE EVENT DATE: 201609
